FAERS Safety Report 9240380 (Version 1)
Quarter: 2013Q2

REPORT INFORMATION
  Report Type: Spontaneous
  Country: US (occurrence: US)
  Receive Date: 20130418
  Receipt Date: 20130418
  Transmission Date: 20140414
  Serious: Yes (Other)
  Sender: FDA-Public Use
  Company Number: US-GILEAD-2013-0073710

PATIENT
  Age: 47 Year
  Sex: Female

DRUGS (1)
  1. LETAIRIS [Suspect]
     Indication: PRODUCT USED FOR UNKNOWN INDICATION
     Dosage: 2.5 MG, QD
     Route: 048
     Dates: start: 20120118

REACTIONS (4)
  - Pulmonary arterial pressure increased [Recovered/Resolved]
  - Condition aggravated [Recovered/Resolved]
  - Unevaluable event [Recovered/Resolved]
  - Oxygen consumption [Recovered/Resolved]
